FAERS Safety Report 15203830 (Version 3)
Quarter: 2018Q4

REPORT INFORMATION
  Report Type: Spontaneous
  Country: AU (occurrence: AU)
  Receive Date: 20180726
  Receipt Date: 20181031
  Transmission Date: 20190204
  Serious: Yes (Hospitalization)
  Sender: FDA-Public Use
  Company Number: AU-ASTRAZENECA-2018SE94906

PATIENT
  Age: 17 Year
  Sex: Female

DRUGS (1)
  1. FASENRA [Suspect]
     Active Substance: BENRALIZUMAB
     Route: 058
     Dates: start: 20180717

REACTIONS (7)
  - Malaise [Recovered/Resolved]
  - Abdominal pain [Recovered/Resolved]
  - Gastric disorder [Unknown]
  - Viral infection [Unknown]
  - Asthma [Recovered/Resolved]
  - Nausea [Recovered/Resolved]
  - Gastrointestinal disorder [Unknown]

NARRATIVE: CASE EVENT DATE: 20180718
